FAERS Safety Report 17941432 (Version 1)
Quarter: 2020Q2

REPORT INFORMATION
  Report Type: Spontaneous
  Country: US (occurrence: US)
  Receive Date: 20200624
  Receipt Date: 20200624
  Transmission Date: 20200714
  Serious: Yes (Other)
  Sender: FDA-Public Use
  Company Number: US-NAPPMUNDI-USA-2020-0153836

PATIENT

DRUGS (4)
  1. OXYCONTIN [Suspect]
     Active Substance: OXYCODONE HYDROCHLORIDE
     Indication: BACK INJURY
     Dosage: 280/80 MG, MONTHLY
     Route: 048
     Dates: start: 2010, end: 2014
  2. OXYCONTIN [Suspect]
     Active Substance: OXYCODONE HYDROCHLORIDE
     Dosage: UNK
     Route: 048
     Dates: start: 2014, end: 2016
  3. OXYCODONE HYDROCHLORIDE (SIMILAR TO NDA 22-272) [Suspect]
     Active Substance: OXYCODONE HYDROCHLORIDE
     Dosage: UNK
     Route: 048
     Dates: start: 2014, end: 2016
  4. OXYCODONE HYDROCHLORIDE (SIMILAR TO NDA 22-272) [Suspect]
     Active Substance: OXYCODONE HYDROCHLORIDE
     Indication: BACK INJURY
     Dosage: 720/30 MG, MONTHLY
     Route: 048
     Dates: start: 2010, end: 2014

REACTIONS (6)
  - Renal disorder [Unknown]
  - Drug dependence [Unknown]
  - Haemorrhoids [Recovered/Resolved]
  - Dehydration [Recovered/Resolved]
  - Constipation [Recovered/Resolved]
  - Liver injury [Unknown]
